FAERS Safety Report 14009749 (Version 2)
Quarter: 2017Q4

REPORT INFORMATION
  Report Type: Spontaneous
  Country: US (occurrence: US)
  Receive Date: 20170925
  Receipt Date: 20171016
  Transmission Date: 20180321
  Serious: Yes (Disabling, Other)
  Sender: FDA-Public Use
  Company Number: US-009507513-1709USA010546

PATIENT
  Age: 27 Year
  Sex: Female

DRUGS (8)
  1. CHLORZOXAZONE. [Concomitant]
     Active Substance: CHLORZOXAZONE
  2. OMEPRAZOLE. [Concomitant]
     Active Substance: OMEPRAZOLE
     Dosage: UNK
  3. NEXPLANON [Suspect]
     Active Substance: ETONOGESTREL
     Indication: CONTRACEPTION
     Dosage: ONE NEXPLANON IMPLANT
     Route: 059
     Dates: start: 20170913, end: 2017
  4. REBIF [Concomitant]
     Active Substance: INTERFERON BETA-1A
  5. NAPROXEN. [Concomitant]
     Active Substance: NAPROXEN
     Dosage: UNK
  6. AMPYRA [Concomitant]
     Active Substance: DALFAMPRIDINE
  7. ZYRTEC [Concomitant]
     Active Substance: CETIRIZINE HYDROCHLORIDE
  8. IRON (UNSPECIFIED) [Concomitant]
     Active Substance: IRON

REACTIONS (1)
  - Multiple sclerosis relapse [Not Recovered/Not Resolved]

NARRATIVE: CASE EVENT DATE: 201709
